FAERS Safety Report 25412534 (Version 2)
Quarter: 2025Q2

REPORT INFORMATION
  Report Type: Report from Study
  Country: CA (occurrence: CA)
  Receive Date: 20250609
  Receipt Date: 20250619
  Transmission Date: 20250717
  Serious: Yes (Other)
  Sender: TAKEDA
  Company Number: CA-TAKEDA-2025TUS030547

PATIENT
  Age: 20 Year
  Sex: Female

DRUGS (7)
  1. VEDOLIZUMAB [Suspect]
     Active Substance: VEDOLIZUMAB
     Indication: Colitis ulcerative
  2. VEDOLIZUMAB [Suspect]
     Active Substance: VEDOLIZUMAB
  3. VEDOLIZUMAB [Suspect]
     Active Substance: VEDOLIZUMAB
     Dosage: 300 MILLIGRAM, Q4WEEKS
     Dates: start: 20250612
  4. PREDNISONE [Concomitant]
     Active Substance: PREDNISONE
  5. AMITRIPTYLINE [Concomitant]
     Active Substance: AMITRIPTYLINE
  6. DEXLANSOPRAZOLE [Concomitant]
     Active Substance: DEXLANSOPRAZOLE
  7. Tudcabil [Concomitant]

REACTIONS (7)
  - Rectal haemorrhage [Unknown]
  - Drug level decreased [Unknown]
  - Diarrhoea [Unknown]
  - Anaemia [Unknown]
  - Off label use [Unknown]
  - Alanine aminotransferase abnormal [Unknown]
  - Abdominal pain [Unknown]

NARRATIVE: CASE EVENT DATE: 20250506
